FAERS Safety Report 5042611-9 (Version None)
Quarter: 2006Q2

REPORT INFORMATION
  Report Type: 
  Country: None (occurrence: None)
  Receive Date: 20060627
  Receipt Date: 20060515
  Transmission Date: 20061013
  Serious: Yes (Other)
  Sender: FDA-Public Use
  Company Number: 2006039048

PATIENT
  Age: 59 Year
  Sex: Female

DRUGS (5)
  1. MIGLITOL TABLET (MIGLITOL) [Suspect]
     Indication: DIABETES MELLITUS
     Dosage: 150 MG (50 MG, 3 IN 1 D)
     Dates: start: 20060308, end: 20060312
  2. NORVASC [Concomitant]
  3. NORFLOXACIN [Concomitant]
  4. LEVOFLOXACIN [Concomitant]
  5. LASIX [Concomitant]

REACTIONS (10)
  - BLOOD PRESSURE DIASTOLIC DECREASED [None]
  - BLOOD PRESSURE SYSTOLIC INCREASED [None]
  - CYSTITIS [None]
  - ILEUS [None]
  - INFUSION RELATED REACTION [None]
  - NEUROGENIC BLADDER [None]
  - PAIN [None]
  - URINARY RETENTION [None]
  - URINE OUTPUT DECREASED [None]
  - WEIGHT DECREASED [None]
